FAERS Safety Report 9687119 (Version 2)
Quarter: 2014Q1

REPORT INFORMATION
  Report Type: Spontaneous
  Country: FR (occurrence: FR)
  Receive Date: 20131113
  Receipt Date: 20140224
  Transmission Date: 20141002
  Serious: Yes (Hospitalization)
  Sender: FDA-Public Use
  Company Number: FR-ASTRAZENECA-2013SE82220

PATIENT
  Age: 30486 Day
  Sex: Female

DRUGS (2)
  1. BRILIQUE [Suspect]
     Route: 048
     Dates: start: 20130829
  2. KARDEGIC [Interacting]
     Route: 048
     Dates: start: 20130829

REACTIONS (4)
  - Drug interaction [Unknown]
  - Anaemia [Recovered/Resolved]
  - Melaena [Recovered/Resolved]
  - Diverticulum intestinal [Unknown]
